FAERS Safety Report 20325525 (Version 2)
Quarter: 2022Q1

REPORT INFORMATION
  Report Type: Report from Study
  Country: FR (occurrence: FR)
  Receive Date: 20220112
  Receipt Date: 20220119
  Transmission Date: 20220423
  Serious: Yes (Other)
  Sender: FDA-Public Use
  Company Number: FR-SUN PHARMACEUTICAL INDUSTRIES LTD-2021R1-323340

PATIENT
  Age: 16 Year
  Sex: Male

DRUGS (14)
  1. CISPLATIN [Suspect]
     Active Substance: CISPLATIN
     Indication: Osteosarcoma
     Dosage: 0.4 GRAM PER SQUARE METRE
     Route: 065
  2. CISPLATIN [Suspect]
     Active Substance: CISPLATIN
     Indication: Metastases to lung
  3. METHOTREXATE [Suspect]
     Active Substance: METHOTREXATE
     Indication: Osteosarcoma
     Dosage: 48 GRAM PER SQUARE METRE
     Route: 065
  4. METHOTREXATE [Suspect]
     Active Substance: METHOTREXATE
     Indication: Metastases to lung
  5. DOXORUBICIN HYDROCHLORIDE [Suspect]
     Active Substance: DOXORUBICIN HYDROCHLORIDE
     Indication: Osteosarcoma
     Dosage: 0.46 GRAM PER SQUARE METRE
     Route: 065
  6. DOXORUBICIN HYDROCHLORIDE [Suspect]
     Active Substance: DOXORUBICIN HYDROCHLORIDE
     Indication: Metastases to lung
  7. IFOSFAMIDE [Suspect]
     Active Substance: IFOSFAMIDE
     Indication: Osteosarcoma
     Dosage: 45 GRAM PER SQUARE METRE
     Route: 065
  8. IFOSFAMIDE [Suspect]
     Active Substance: IFOSFAMIDE
     Indication: Metastases to lung
  9. MESNA [Suspect]
     Active Substance: MESNA
     Indication: Osteosarcoma
     Dosage: 55.9 GRAM PER SQUARE METRE
     Route: 065
  10. MESNA [Suspect]
     Active Substance: MESNA
     Indication: Metastases to lung
  11. ETOPOSIDE [Suspect]
     Active Substance: ETOPOSIDE
     Indication: Osteosarcoma
     Dosage: 0.5 GRAM PER SQUARE METRE
     Route: 065
  12. ETOPOSIDE [Suspect]
     Active Substance: ETOPOSIDE
     Indication: Metastases to lung
  13. VINDESINE [Suspect]
     Active Substance: VINDESINE
     Indication: Osteosarcoma
     Dosage: 0.015 GRAM PER SQUARE METRE
     Route: 065
  14. VINDESINE [Suspect]
     Active Substance: VINDESINE
     Indication: Metastases to lung

REACTIONS (3)
  - Nephropathy toxic [Unknown]
  - Renal tubular disorder [Unknown]
  - Drug level abnormal [Unknown]
